FAERS Safety Report 24971445 (Version 1)
Quarter: 2025Q1

REPORT INFORMATION
  Report Type: Spontaneous
  Country: US (occurrence: None)
  Receive Date: 20250214
  Receipt Date: 20250214
  Transmission Date: 20250409
  Serious: No
  Sender: FDA-CTU
  Company Number: None

PATIENT

DRUGS (4)
  1. SILDENAFIL [Suspect]
     Active Substance: SILDENAFIL
  2. FUROSEMIDE [Suspect]
     Active Substance: FUROSEMIDE
  3. TORSEMIDE [Suspect]
     Active Substance: TORSEMIDE
  4. ORENITRAM [Suspect]
     Active Substance: TREPROSTINIL

REACTIONS (5)
  - Fluid retention [None]
  - Swelling [None]
  - Dyspnoea [None]
  - Therapy change [None]
  - Therapy change [None]
